FAERS Safety Report 22521858 (Version 1)
Quarter: 2023Q2

REPORT INFORMATION
  Report Type: Spontaneous
  Country: US (occurrence: US)
  Receive Date: 20230605
  Receipt Date: 20230605
  Transmission Date: 20230722
  Serious: Yes (Other)
  Sender: FDA-Public Use
  Company Number: US-002147023-NVSC2023US125290

PATIENT
  Sex: Female

DRUGS (9)
  1. ENOXAPARIN [Suspect]
     Active Substance: ENOXAPARIN
     Indication: Deep vein thrombosis
     Dosage: 1 MG/KG, BID
     Route: 065
  2. ENOXAPARIN [Suspect]
     Active Substance: ENOXAPARIN
     Dosage: UNK (DOSE WAS INCREASED BY 30% ACHIEVING AN ANTI-XA LEVEL OF 1.11 LU/ML)
     Route: 065
  3. BETAMETHASONE [Suspect]
     Active Substance: BETAMETHASONE
     Indication: Maternal therapy to enhance foetal lung maturity
     Dosage: UNK
     Route: 065
  4. UNSPECIFIED INGREDIENT [Suspect]
     Active Substance: UNSPECIFIED INGREDIENT
     Indication: Deep vein thrombosis
     Dosage: 1 DOSAGE FORM, QD
     Route: 065
  5. HEPARIN [Suspect]
     Active Substance: HEPARIN SODIUM
     Indication: Product used for unknown indication
     Dosage: UNK, 80U/KG
     Route: 040
  6. HEPARIN [Suspect]
     Active Substance: HEPARIN SODIUM
     Dosage: UNK, QH (18U/KG/H)
     Route: 040
  7. THROMBATE III [Suspect]
     Active Substance: ANTITHROMBIN III HUMAN
     Indication: Antithrombin III deficiency
     Dosage: UNK (WEIGHT-BASED DOSING AND TARGETING ACTIVITY OF 80%)
     Route: 065
  8. THROMBATE III [Suspect]
     Active Substance: ANTITHROMBIN III HUMAN
     Indication: Anticoagulant therapy
  9. OXYTOCIN [Suspect]
     Active Substance: OXYTOCIN
     Indication: Labour induction
     Dosage: UNK
     Route: 065

REACTIONS (3)
  - Premature delivery [Unknown]
  - Maternal exposure during pregnancy [Unknown]
  - Delivery [Unknown]
